FAERS Safety Report 5524700-5 (Version None)
Quarter: 2007Q4

REPORT INFORMATION
  Report Type: 
  Country: None (occurrence: None)
  Receive Date: 20071123
  Receipt Date: 20071116
  Transmission Date: 20080405
  Serious: Yes (Hospitalization)
  Sender: FDA-Public Use
  Company Number: PHRM2007FR02606

PATIENT
  Age: 71 Year
  Sex: Male

DRUGS (8)
  1. COMTAN [Suspect]
     Indication: SUICIDE ATTEMPT
     Dosage: 16 G, ONCE/SINGLE
     Route: 048
     Dates: start: 20070919, end: 20070919
  2. RIVOTRIL [Suspect]
     Indication: SUICIDE ATTEMPT
     Dosage: 12 DRP, UNK
     Route: 048
     Dates: end: 20070918
  3. RIVOTRIL [Suspect]
     Dosage: ONE FLASK, ONCE SINGLE
     Route: 048
     Dates: start: 20070919, end: 20070919
  4. STALEVO 100 [Suspect]
     Indication: PARKINSON'S DISEASE
     Dosage: 1000/750/187.5 MG/DAY
     Route: 048
     Dates: end: 20070918
  5. STALEVO 100 [Suspect]
     Route: 048
     Dates: start: 20070920
  6. EFFERALGAN CODEINE [Concomitant]
     Route: 048
  7. LACTULOSE [Concomitant]
     Route: 048
  8. ALCOHOL [Suspect]
     Indication: SUICIDE ATTEMPT
     Dosage: 1 BOTTLE, ONCE SINGLE
     Route: 048
     Dates: start: 20070919, end: 20070919

REACTIONS (10)
  - APHASIA [None]
  - BLOOD CREATINE PHOSPHOKINASE INCREASED [None]
  - CONFUSIONAL STATE [None]
  - DRUG WITHDRAWAL SYNDROME [None]
  - GLASGOW COMA SCALE ABNORMAL [None]
  - INTENTIONAL OVERDOSE [None]
  - LUNG DISORDER [None]
  - NEUROLEPTIC MALIGNANT SYNDROME [None]
  - SOMNOLENCE [None]
  - SUICIDE ATTEMPT [None]
